FAERS Safety Report 10518263 (Version 1)
Quarter: 2014Q4

REPORT INFORMATION
  Report Type: Spontaneous
  Country: US (occurrence: None)
  Receive Date: 20141014
  Receipt Date: 20141014
  Transmission Date: 20150528
  Serious: Yes (Death, Hospitalization)
  Sender: FDA-Public Use
  Company Number: None

PATIENT
  Sex: Male
  Weight: 82.7 kg

DRUGS (7)
  1. PANTOPRAZOLE [Concomitant]
     Active Substance: PANTOPRAZOLE SODIUM
  2. RIBAVIRIN. [Suspect]
     Active Substance: RIBAVIRIN
     Indication: HEPATITIS C
     Route: 048
     Dates: start: 20140624, end: 20140729
  3. SPIRONOLACTONE. [Concomitant]
     Active Substance: SPIRONOLACTONE
  4. SOFOSBUVIR [Suspect]
     Active Substance: SOFOSBUVIR
     Indication: HEPATITIS C
     Route: 048
     Dates: start: 20140624, end: 20140729
  5. LASIX [Concomitant]
     Active Substance: FUROSEMIDE
  6. VITAMIN D [Concomitant]
     Active Substance: CHOLECALCIFEROL
  7. NADOLOL. [Concomitant]
     Active Substance: NADOLOL

REACTIONS (17)
  - Fracture displacement [None]
  - Haemodynamic instability [None]
  - Occult blood positive [None]
  - Cardiac arrest [None]
  - Rib fracture [None]
  - Shock [None]
  - Coagulopathy [None]
  - Retroperitoneal haematoma [None]
  - International normalised ratio increased [None]
  - Acidosis [None]
  - Impaired driving ability [None]
  - Road traffic accident [None]
  - Lumbar vertebral fracture [None]
  - Haematemesis [None]
  - Clavicle fracture [None]
  - Spleen disorder [None]
  - Peritoneal perforation [None]

NARRATIVE: CASE EVENT DATE: 20140728
